FAERS Safety Report 13689028 (Version 4)
Quarter: 2018Q2

REPORT INFORMATION
  Report Type: Spontaneous
  Country: IT (occurrence: IT)
  Receive Date: 20170626
  Receipt Date: 20180511
  Transmission Date: 20180711
  Serious: Yes (Hospitalization)
  Sender: FDA-Public Use
  Company Number: IT-AUROBINDO-AUR-APL-2017-35687

PATIENT
  Age: 72 Year
  Sex: Female

DRUGS (26)
  1. ADEFOVIR DIPIVOXIL. [Suspect]
     Active Substance: ADEFOVIR DIPIVOXIL
     Dosage: UNK
     Route: 065
  2. PREDNISONE. [Suspect]
     Active Substance: PREDNISONE
     Indication: CRYOGLOBULINAEMIA
     Dosage: 5 MILLIGRAM, DAILY
     Route: 065
     Dates: start: 1997
  3. LAMIVUDINE. [Suspect]
     Active Substance: LAMIVUDINE
     Indication: PRODUCT USED FOR UNKNOWN INDICATION
     Route: 065
  4. RIBAVIRIN. [Suspect]
     Active Substance: RIBAVIRIN
     Indication: HEPATITIS C
     Dosage: UNK
     Route: 065
     Dates: start: 20151105, end: 201602
  5. ADEFOVIR DIPIVOXIL. [Suspect]
     Active Substance: ADEFOVIR DIPIVOXIL
     Indication: PRODUCT USED FOR UNKNOWN INDICATION
     Route: 065
  6. SOVALDI [Suspect]
     Active Substance: SOFOSBUVIR
     Dosage: UNK
     Route: 065
  7. LAMIVUDINE. [Suspect]
     Active Substance: LAMIVUDINE
     Dosage: UNK ()
     Route: 065
  8. SOFOSBUVIR [Suspect]
     Active Substance: SOFOSBUVIR
     Indication: HEPATITIS C
     Dosage: ()
     Route: 065
     Dates: start: 20151105, end: 201602
  9. VIREAD [Suspect]
     Active Substance: TENOFOVIR DISOPROXIL FUMARATE
     Dosage: UNK ()
     Route: 065
  10. RIBAVIRIN. [Suspect]
     Active Substance: RIBAVIRIN
     Dosage: ()
  11. ENTECAVIR. [Suspect]
     Active Substance: ENTECAVIR
     Dosage: 0.5 MILLIGRAM
     Route: 065
  12. ENTECAVIR. [Suspect]
     Active Substance: ENTECAVIR
     Dosage: 0.5 MG, UNK
     Route: 065
  13. ENTECAVIR. [Suspect]
     Active Substance: ENTECAVIR
     Dosage: ()
  14. ENTECAVIR. [Suspect]
     Active Substance: ENTECAVIR
     Dosage: ()
  15. VIREAD [Suspect]
     Active Substance: TENOFOVIR DISOPROXIL FUMARATE
     Indication: PRODUCT USED FOR UNKNOWN INDICATION
     Route: 065
  16. RITUXIMAB. [Suspect]
     Active Substance: RITUXIMAB
     Indication: CRYOGLOBULINAEMIA
     Dosage: SEVERAL CYCLES ()
     Route: 065
     Dates: end: 201108
  17. LAMIVUDINE. [Suspect]
     Active Substance: LAMIVUDINE
     Dosage: UNK ()
     Route: 065
  18. RIBAVIRIN. [Suspect]
     Active Substance: RIBAVIRIN
     Dosage: UNK ()
     Route: 065
  19. RIBAVIRIN. [Suspect]
     Active Substance: RIBAVIRIN
     Dosage: ()
  20. ADEFOVIR DIPIVOXIL. [Suspect]
     Active Substance: ADEFOVIR DIPIVOXIL
     Dosage: UNK
     Route: 065
  21. ENTECAVIR. [Suspect]
     Active Substance: ENTECAVIR
     Indication: HEPATITIS B REACTIVATION
     Dosage: 0.5 MILLIGRAM, ONCE A DAY
     Route: 065
  22. SOVALDI [Suspect]
     Active Substance: SOFOSBUVIR
     Indication: CHRONIC HEPATITIS C
     Dosage: UNK
     Route: 065
  23. SOVALDI [Suspect]
     Active Substance: SOFOSBUVIR
     Dosage: UNK ()
     Route: 065
  24. SOVALDI [Suspect]
     Active Substance: SOFOSBUVIR
     Dosage: ()
  25. ADEFOVIR DIPIVOXIL. [Suspect]
     Active Substance: ADEFOVIR DIPIVOXIL
     Dosage: UNK
  26. VIREAD [Suspect]
     Active Substance: TENOFOVIR DISOPROXIL FUMARATE
     Dosage: UNK ()
     Route: 065

REACTIONS (2)
  - Hepatitis B reactivation [Recovered/Resolved]
  - Drug resistance [Unknown]
